FAERS Safety Report 5135154-5 (Version None)
Quarter: 2006Q4

REPORT INFORMATION
  Report Type: 
  Country: None (occurrence: None)
  Receive Date: 20060831
  Receipt Date: 20060710
  Transmission Date: 20070319
  Serious: No
  Sender: FDA-Public Use
  Company Number: 2006-BP-05331BP

PATIENT
  Sex: Female

DRUGS (5)
  1. SPIRIVA [Suspect]
     Indication: CHRONIC OBSTRUCTIVE PULMONARY DISEASE
     Dosage: 18 MCG (18 MCG),IH
     Dates: start: 20051230, end: 20060410
  2. SPIRIVA [Suspect]
     Indication: PNEUMONIA
     Dosage: 18 MCG (18 MCG),IH
     Dates: start: 20051230, end: 20060410
  3. SPIRIVA [Suspect]
  4. CALTRATE PLUS D [Concomitant]
  5. FOSAMAX [Concomitant]

REACTIONS (1)
  - ALOPECIA [None]
